FAERS Safety Report 6103041-1 (Version None)
Quarter: 2009Q1

REPORT INFORMATION
  Report Type: 
  Country: None (occurrence: None)
  Receive Date: 20090227
  Receipt Date: 20090224
  Transmission Date: 20090719
  Serious: Yes (Hospitalization)
  Sender: FDA-Public Use
  Company Number: WAES 0902ESP00032

PATIENT
  Age: 43 Year
  Sex: Female

DRUGS (6)
  1. ZETIA [Suspect]
     Indication: DYSLIPIDAEMIA
     Dosage: 10 MG/DAILY
     Route: 048
     Dates: start: 20070210
  2. ASPIRIN [Concomitant]
  3. ATORVASTATIN CALCIUM [Concomitant]
  4. CLOPIDOGREL BISULFATE [Concomitant]
  5. INSULIN ASPART [Concomitant]
  6. INSULIN GLARGINE [Concomitant]

REACTIONS (2)
  - ANGIOPLASTY [None]
  - HIGH DENSITY LIPOPROTEIN DECREASED [None]
